FAERS Safety Report 8602452 (Version 5)
Quarter: 2020Q3

REPORT INFORMATION
  Report Type: Spontaneous
  Country: FR (occurrence: FR)
  Receive Date: 20120607
  Receipt Date: 20140113
  Transmission Date: 20201104
  Serious: Yes (Life-Threatening, Hospitalization)
  Sender: FDA-Public Use
  Company Number: FR-NOVOPROD-352947

PATIENT
  Age: 31 Year
  Sex: Female

DRUGS (20)
  1. NOVOSEVEN [Suspect]
     Active Substance: COAGULATION FACTOR VIIA RECOMBINANT HUMAN
     Indication: THIRD STAGE POSTPARTUM HAEMORRHAGE
     Dosage: 4 MG, QD
     Route: 042
     Dates: start: 20120108, end: 20120108
  2. EXACYL [Suspect]
     Active Substance: TRANEXAMIC ACID
     Indication: POSTPARTUM HAEMORRHAGE
     Dosage: 4 G, QD
     Route: 042
     Dates: start: 20120108, end: 20120108
  3. CLOTTAFACT [Suspect]
     Active Substance: FIBRINOGEN HUMAN
     Indication: THIRD STAGE POSTPARTUM HAEMORRHAGE
     Dosage: 6 G, QD
     Route: 042
     Dates: start: 20120108, end: 20120108
  4. DIPRIVAN [Concomitant]
     Active Substance: PROPOFOL
     Dosage: UNK
     Route: 042
     Dates: start: 20120108, end: 20120108
  5. RED BLOOD CELLS [Concomitant]
     Active Substance: HUMAN RED BLOOD CELL
  6. PLASMA, FRESH FROZEN [Concomitant]
     Active Substance: HUMAN PLASMA
     Indication: THIRD STAGE POSTPARTUM HAEMORRHAGE
     Dosage: 3 PACKS OF FRESH FROZEN PLASMA
     Route: 065
  7. TAGAMET [Suspect]
     Active Substance: CIMETIDINE
     Indication: SPINAL ANAESTHESIA
     Dosage: 400 MG, QD
     Route: 065
     Dates: start: 20120108, end: 20120108
  8. ETOMIDATE. [Suspect]
     Active Substance: ETOMIDATE
     Indication: DIALYSIS
     Dosage: UNK
     Dates: start: 20120108, end: 20120108
  9. VOLUVEN [Concomitant]
     Active Substance: HYDROXYETHYL STARCH 130/0.4
     Indication: POSTPARTUM HAEMORRHAGE
     Dosage: UNK
     Route: 065
  10. CELOCURINE /00057702/ [Suspect]
     Active Substance: SUCCINYLCHOLINE CHLORIDE
     Indication: ENDOTRACHEAL INTUBATION
     Dosage: ONCE DOSE
     Route: 042
     Dates: start: 20120108, end: 20120108
  11. NEOSYNEPHRINE [Suspect]
     Active Substance: PHENYLEPHRINE HYDROCHLORIDE
     Indication: SPINAL ANAESTHESIA
     Dosage: 100 UG, SINGLE
     Dates: start: 20120108
  12. PLATELETS [Concomitant]
     Active Substance: HUMAN PLATELET, ALLOGENIC
     Indication: THIRD STAGE POSTPARTUM HAEMORRHAGE
     Dosage: UNK
  13. NALADOR [Suspect]
     Active Substance: SULPROSTONE
     Indication: PRODUCT USED FOR UNKNOWN INDICATION
     Dosage: 1000 UG, QD
     Route: 042
     Dates: start: 20120108, end: 20120108
  14. SEVOFLURANE BAXTER [Suspect]
     Active Substance: SEVOFLURANE
     Indication: ANAESTHESIA
     Dosage: UNK
     Route: 055
     Dates: start: 20120108, end: 20120108
  15. EPHEDRINE. [Suspect]
     Active Substance: EPHEDRINE
     Indication: SPINAL ANAESTHESIA
     Dosage: 60 MG, QD
     Route: 042
     Dates: start: 20120108, end: 20120108
  16. SUFENTA [Suspect]
     Active Substance: SUFENTANIL CITRATE
     Indication: PRODUCT USED FOR UNKNOWN INDICATION
     Dosage: UNK
     Route: 065
     Dates: start: 20120108
  17. PABAL [Suspect]
     Active Substance: CARBETOCIN
     Indication: UTERINE ATONY
     Dosage: 100 UG, QD
     Route: 042
     Dates: start: 20120108, end: 20120108
  18. BUPIVACAINE AGUETTANT [Suspect]
     Active Substance: BUPIVACAINE HYDROCHLORIDE
     Indication: SPINAL ANAESTHESIA
     Dosage: 10 MG, QD
     Route: 008
     Dates: start: 20120108, end: 20120108
  19. CEFAZOLINE [Suspect]
     Active Substance: CEFAZOLIN SODIUM
     Indication: ANTIBIOTIC PROPHYLAXIS
     Dosage: ONCE DAILY
     Route: 042
     Dates: start: 20120108, end: 20120108
  20. TRACRIUM [Suspect]
     Active Substance: ATRACURIUM BESYLATE
     Indication: ANAESTHESIA
     Dosage: UNK
     Route: 042
     Dates: start: 20120108, end: 20120108

REACTIONS (2)
  - Acute kidney injury [Recovered/Resolved]
  - Dialysis [Recovered/Resolved]

NARRATIVE: CASE EVENT DATE: 20120109
